FAERS Safety Report 8686588 (Version 2)
Quarter: 2012Q4

REPORT INFORMATION
  Report Type: 
  Country: US (occurrence: US)
  Receive Date: 20120726
  Receipt Date: 20120928
  Transmission Date: 20130627
  Serious: Yes (Hospitalization, Other)
  Sender: FDA-Public Use
  Company Number: US-009507513-1207USA008994

PATIENT
  Age: 53 Year
  Sex: Female
  Weight: 108.39 kg

DRUGS (13)
  1. JANUVIA [Suspect]
     Indication: DIABETES MELLITUS
     Dosage: 100 mg, qd
     Route: 048
  2. HYDROCHLOROTHIAZIDE [Suspect]
  3. SIMVASTATIN [Concomitant]
     Dosage: 40 mg, qd
     Route: 048
  4. LISINOPRIL [Concomitant]
     Dosage: 40 mg, qd
  5. COMBIVENT [Concomitant]
     Dosage: 2 DF, prn
  6. VITAMIN D (UNSPECIFIED) [Concomitant]
  7. METFORMIN [Concomitant]
     Dosage: UNK
  8. LEXAPRO [Concomitant]
     Dosage: UNK UNK, qd
  9. ADVAIR [Concomitant]
     Dosage: UNK
  10. ASPIRIN [Concomitant]
     Dosage: 81 mg, UNK
     Route: 048
  11. COD LIVER OIL [Concomitant]
     Dosage: 1 DF, UNK
     Route: 048
  12. LANTUS [Concomitant]
     Dosage: 15 IU, UNK
  13. GABAPENTIN [Concomitant]

REACTIONS (4)
  - Pancreatitis acute [Recovered/Resolved]
  - Diabetes mellitus inadequate control [Unknown]
  - Clostridium difficile colitis [Unknown]
  - Chronic obstructive pulmonary disease [Unknown]
